FAERS Safety Report 23077431 (Version 1)
Quarter: 2023Q4

REPORT INFORMATION
  Report Type: Spontaneous
  Country: DE (occurrence: DE)
  Receive Date: 20231018
  Receipt Date: 20231018
  Transmission Date: 20240109
  Serious: Yes (Other)
  Sender: FDA-Public Use
  Company Number: DE-DCGMA-23201409

PATIENT
  Age: 82 Year
  Sex: Male
  Weight: 95 kg

DRUGS (2)
  1. ALLOPURINOL [Suspect]
     Active Substance: ALLOPURINOL
     Indication: Hyperuricaemia
     Route: 048
     Dates: start: 20230428, end: 20230506
  2. ALLOPURINOL [Suspect]
     Active Substance: ALLOPURINOL
     Indication: Gout

REACTIONS (7)
  - Peripheral swelling [Unknown]
  - Dyspnoea [Unknown]
  - Inflammation scan [Unknown]
  - General physical health deterioration [Unknown]
  - Thirst [Unknown]
  - Oedema genital [Unknown]
  - Acute kidney injury [Unknown]

NARRATIVE: CASE EVENT DATE: 20230503
